FAERS Safety Report 7789388-1 (Version None)
Quarter: 2011Q3

REPORT INFORMATION
  Report Type: 
  Country: None (occurrence: None)
  Receive Date: 20110930
  Receipt Date: 20110920
  Transmission Date: 20111222
  Serious: Yes (Other)
  Sender: FDA-Public Use
  Company Number: US-BAYER-2011-091269

PATIENT
  Age: 46 Year
  Sex: Female
  Weight: 88.889 kg

DRUGS (6)
  1. YAZ [Suspect]
     Indication: CONTRACEPTION
     Dosage: UNK
     Dates: start: 20090401, end: 20090901
  2. FAMOTIDINE [Concomitant]
     Dosage: 20 MG, UNK
     Route: 048
     Dates: start: 20090829
  3. CLARITIN-D 24 HOUR [Concomitant]
     Route: 048
  4. WELLBUTRIN [Concomitant]
     Route: 048
  5. ROPINIROLE HYDROCHLORIDE [Concomitant]
     Dosage: 3 MG, CONT
     Route: 048
  6. CITALOPRAM [Concomitant]
     Dosage: 40 MG, UNK
     Route: 048
     Dates: start: 20090517

REACTIONS (3)
  - CHOLECYSTITIS CHRONIC [None]
  - CHOLECYSTECTOMY [None]
  - PAIN [None]
